FAERS Safety Report 14991058 (Version 1)
Quarter: 2018Q2

REPORT INFORMATION
  Report Type: Spontaneous
  Country: US (occurrence: US)
  Receive Date: 20180608
  Receipt Date: 20180608
  Transmission Date: 20180711
  Serious: Yes (Death)
  Sender: FDA-Public Use
  Company Number: US-VIFOR (INTERNATIONAL) INC.-VIT-2018-05441

PATIENT
  Age: 64 Year
  Sex: Female

DRUGS (27)
  1. RENVELA [Concomitant]
     Active Substance: SEVELAMER CARBONATE
  2. FOLIC ACID. [Concomitant]
     Active Substance: FOLIC ACID
  3. CLONIDINE HYDROCHLORIDE. [Concomitant]
     Active Substance: CLONIDINE HYDROCHLORIDE
  4. CIPROFLOXACIN HYDROCHLORIDE. [Concomitant]
     Active Substance: CIPROFLOXACIN HYDROCHLORIDE
  5. HUMULIN R [Concomitant]
     Active Substance: INSULIN HUMAN
  6. PROTONIX [Concomitant]
     Active Substance: PANTOPRAZOLE SODIUM
  7. METOPROLOL TARTRATE. [Concomitant]
     Active Substance: METOPROLOL TARTRATE
  8. LANTUS [Concomitant]
     Active Substance: INSULIN GLARGINE
  9. VELTASSA [Suspect]
     Active Substance: PATIROMER
     Indication: HYPERKALAEMIA
     Route: 048
     Dates: start: 20171229
  10. BENADRYL [Concomitant]
     Active Substance: DIPHENHYDRAMINE HYDROCHLORIDE
  11. LACTULOSE. [Concomitant]
     Active Substance: LACTULOSE
  12. NOVOLOG [Concomitant]
     Active Substance: INSULIN ASPART
  13. TRAMADOL HYDROCHLORIDE. [Concomitant]
     Active Substance: TRAMADOL HYDROCHLORIDE
  14. BISCODYL EC [Concomitant]
  15. LORATADINE. [Concomitant]
     Active Substance: LORATADINE
  16. ELIQUIS [Concomitant]
     Active Substance: APIXABAN
  17. MAPAP [Concomitant]
     Active Substance: ACETAMINOPHEN
  18. LOVASTATIN. [Concomitant]
     Active Substance: LOVASTATIN
  19. DAILY VITES [Concomitant]
  20. VITAMINS NOS [Concomitant]
     Active Substance: VITAMINS
  21. PROAIR HFA [Concomitant]
     Active Substance: ALBUTEROL SULFATE
  22. NOVOLIN R [Concomitant]
     Active Substance: INSULIN HUMAN
  23. LIDOCAINE HYDROCHLORIDE~~PRILOCAINE HYDROCHLORIDE [Concomitant]
  24. GABAPENTIN. [Concomitant]
     Active Substance: GABAPENTIN
  25. DOCUSATE SODIUM. [Concomitant]
     Active Substance: DOCUSATE SODIUM
  26. ACETYLSALICYLIC ACID [Concomitant]
     Active Substance: ASPIRIN
  27. BANOPHEN [Concomitant]
     Active Substance: DIPHENHYDRAMINE HYDROCHLORIDE

REACTIONS (1)
  - Death [Fatal]

NARRATIVE: CASE EVENT DATE: 20180529
